FAERS Safety Report 9526954 (Version 2)
Quarter: 2013Q3

REPORT INFORMATION
  Report Type: Spontaneous
  Country: US (occurrence: US)
  Receive Date: 20130916
  Receipt Date: 20130916
  Transmission Date: 20140515
  Serious: No
  Sender: FDA-Public Use
  Company Number: US-ASTRAZENECA-2012SE23084

PATIENT
  Age: 87 Year
  Sex: Male
  Weight: 92.5 kg

DRUGS (28)
  1. SYMBICORT [Suspect]
     Indication: DYSPNOEA
     Dosage: 160/4.5 MCG TWO PUFFS TWO TIMES A DAY
     Route: 055
     Dates: start: 2011
  2. SYMBICORT [Suspect]
     Indication: CHRONIC OBSTRUCTIVE PULMONARY DISEASE
     Dosage: 160/4.5 MCG TWO PUFFS TWO TIMES A DAY
     Route: 055
     Dates: start: 2011
  3. SYMBICORT [Suspect]
     Indication: PULMONARY CONGESTION
     Dosage: 160/4.5 MCG TWO PUFFS TWO TIMES A DAY
     Route: 055
     Dates: start: 2011
  4. SYMBICORT [Suspect]
     Indication: DYSPNOEA
     Dosage: 160/4.5 MCG TWO PUFFS TWO TIMES A DAY
     Route: 055
     Dates: start: 20120331
  5. SYMBICORT [Suspect]
     Indication: CHRONIC OBSTRUCTIVE PULMONARY DISEASE
     Dosage: 160/4.5 MCG TWO PUFFS TWO TIMES A DAY
     Route: 055
     Dates: start: 20120331
  6. SYMBICORT [Suspect]
     Indication: PULMONARY CONGESTION
     Dosage: 160/4.5 MCG TWO PUFFS TWO TIMES A DAY
     Route: 055
     Dates: start: 20120331
  7. SYMBICORT [Suspect]
     Indication: DYSPNOEA
     Dosage: 160/4.5 MCG ONE PUFF TWO TIMES A DAY
     Route: 055
     Dates: end: 20120408
  8. SYMBICORT [Suspect]
     Indication: CHRONIC OBSTRUCTIVE PULMONARY DISEASE
     Dosage: 160/4.5 MCG ONE PUFF TWO TIMES A DAY
     Route: 055
     Dates: end: 20120408
  9. SYMBICORT [Suspect]
     Indication: PULMONARY CONGESTION
     Dosage: 160/4.5 MCG ONE PUFF TWO TIMES A DAY
     Route: 055
     Dates: end: 20120408
  10. SYMBICORT [Suspect]
     Indication: DYSPNOEA
     Dosage: 160/4.5 MCG TWO PUFFS TWICE A DAY
     Route: 055
  11. SYMBICORT [Suspect]
     Indication: CHRONIC OBSTRUCTIVE PULMONARY DISEASE
     Dosage: 160/4.5 MCG TWO PUFFS TWICE A DAY
     Route: 055
  12. SYMBICORT [Suspect]
     Indication: PULMONARY CONGESTION
     Dosage: 160/4.5 MCG TWO PUFFS TWICE A DAY
     Route: 055
  13. PLAVIX [Concomitant]
     Route: 048
  14. SPIRONOLACTONE [Concomitant]
     Route: 048
  15. FUROSEMIDE [Concomitant]
  16. ALBUTEROL [Concomitant]
  17. FOLIC ACID [Concomitant]
     Route: 048
  18. LASIX [Concomitant]
     Route: 048
  19. COREG [Concomitant]
     Route: 048
  20. ALOPURINOL [Concomitant]
     Route: 048
  21. ASPIRIN [Concomitant]
     Route: 048
  22. SIMVASTATIN [Concomitant]
     Route: 048
  23. PAROXITINE [Concomitant]
     Route: 048
  24. LOSARTIN [Concomitant]
     Dosage: TIWK
     Route: 048
  25. FISH OIL [Concomitant]
     Route: 048
  26. B-COMPLEX [Concomitant]
     Dosage: TWICE A DAY
     Route: 048
  27. COQ-10 [Concomitant]
     Route: 048
  28. ADVAIR [Concomitant]

REACTIONS (6)
  - Nasal congestion [Recovered/Resolved]
  - Dyspnoea exertional [Not Recovered/Not Resolved]
  - Wheezing [Not Recovered/Not Resolved]
  - Fatigue [Not Recovered/Not Resolved]
  - Walking aid user [Unknown]
  - Headache [Recovered/Resolved]
